FAERS Safety Report 9414927 (Version 1)
Quarter: 2013Q3

REPORT INFORMATION
  Report Type: Spontaneous
  Country: US (occurrence: None)
  Receive Date: 20130718
  Receipt Date: 20130718
  Transmission Date: 20140515
  Serious: Yes (Other)
  Sender: FDA-Public Use
  Company Number: COL_14012_2013

PATIENT
  Age: 56 Year
  Sex: Female

DRUGS (1)
  1. COLGATE OPTIC WHITE - SPARKLING MINT [Suspect]
     Indication: DENTAL CARIES
     Route: 048

REACTIONS (3)
  - Angioedema [None]
  - Tongue disorder [None]
  - Stomatitis [None]
